FAERS Safety Report 11937097 (Version 6)
Quarter: 2016Q4

REPORT INFORMATION
  Report Type: Spontaneous
  Country: FR (occurrence: FR)
  Receive Date: 20160121
  Receipt Date: 20161118
  Transmission Date: 20170206
  Serious: Yes (Hospitalization, Other)
  Sender: FDA-Public Use
  Company Number: FR-SA-2016SA010375

PATIENT
  Age: 30 Year
  Sex: Female

DRUGS (5)
  1. INNOVAIR [Concomitant]
     Active Substance: BECLOMETHASONE DIPROPIONATE\FORMOTEROL
     Indication: ASTHMA
  2. MINIDRIL [Concomitant]
     Active Substance: ETHINYL ESTRADIOL\LEVONORGESTREL
     Indication: CONTRACEPTION
  3. LEMTRADA [Suspect]
     Active Substance: ALEMTUZUMAB
     Indication: MULTIPLE SCLEROSIS
     Route: 042
     Dates: start: 20150309
  4. VENTOLINE [Concomitant]
     Active Substance: ALBUTEROL
     Indication: ASTHMA
  5. FAMPYRA [Concomitant]
     Active Substance: DALFAMPRIDINE
     Indication: GAIT DISTURBANCE

REACTIONS (21)
  - Haemorrhage [Recovered/Resolved]
  - Basedow^s disease [Unknown]
  - Fatigue [Unknown]
  - Temperature intolerance [Unknown]
  - Arthralgia [Unknown]
  - Depression [Unknown]
  - Myalgia [Unknown]
  - Hyperthyroidism [Recovered/Resolved]
  - Blood thyroid stimulating hormone decreased [Recovering/Resolving]
  - Contusion [Recovered/Resolved]
  - Epistaxis [Recovered/Resolved]
  - Heart rate increased [Unknown]
  - Immune thrombocytopenic purpura [Recovered/Resolved]
  - Thyroxine increased [Recovering/Resolving]
  - Muscular weakness [Unknown]
  - Heart rate irregular [Unknown]
  - Mood altered [Unknown]
  - Platelet count decreased [Recovered/Resolved]
  - Thyroiditis [Recovered/Resolved]
  - Tremor [Unknown]
  - Asthenia [Recovering/Resolving]

NARRATIVE: CASE EVENT DATE: 201601
